APPROVED DRUG PRODUCT: ALEVE PM
Active Ingredient: DIPHENHYDRAMINE HYDROCHLORIDE; NAPROXEN SODIUM
Strength: 25MG;220MG
Dosage Form/Route: TABLET;ORAL
Application: N205352 | Product #001
Applicant: BAYER HEALTHCARE CONSUMER CARE
Approved: Jan 17, 2014 | RLD: Yes | RS: Yes | Type: OTC